FAERS Safety Report 8932398 (Version 2)
Quarter: 2013Q3

REPORT INFORMATION
  Report Type: Report from Study
  Country: NZ (occurrence: NZ)
  Receive Date: 20121128
  Receipt Date: 20130814
  Transmission Date: 20140515
  Serious: Yes (Disabling, Other)
  Sender: FDA-Public Use
  Company Number: PHHY2012NZ107741

PATIENT
  Age: 40 Year
  Sex: Female

DRUGS (5)
  1. CLOZARIL (CLOZAPINE) [Suspect]
     Dosage: 450 MG, DAILY
     Route: 048
     Dates: start: 20120419
  2. TERAZOSIN [Concomitant]
     Dosage: 2 MG, NOCTE
     Route: 048
     Dates: start: 20121114
  3. LANTUS [Concomitant]
     Dosage: 60 U, QD
     Route: 058
     Dates: start: 20121113
  4. HUMALOG [Concomitant]
     Dosage: 16 U, UNK
     Route: 058
     Dates: start: 20121113
  5. OLANZAPINE [Concomitant]
     Dosage: 15 MG, QD
     Route: 048
     Dates: start: 20121220

REACTIONS (6)
  - Choking sensation [Unknown]
  - Salivary hypersecretion [Unknown]
  - Lower respiratory tract infection [Unknown]
  - Diabetes mellitus [Unknown]
  - Productive cough [Unknown]
  - Malaise [Unknown]
